FAERS Safety Report 17841744 (Version 3)
Quarter: 2020Q3

REPORT INFORMATION
  Report Type: Other
  Country: IL (occurrence: IL)
  Receive Date: 20200529
  Receipt Date: 20200820
  Transmission Date: 20201103
  Serious: Yes (Death, Hospitalization, Other)
  Sender: FDA-Public Use
  Company Number: IL-ROCHE-2590396

PATIENT
  Age: 59 Year
  Sex: Male

DRUGS (1)
  1. ATEZOLIZUMAB. [Suspect]
     Active Substance: ATEZOLIZUMAB
     Indication: SMALL CELL LUNG CANCER
     Dosage: IV X 5 CYCLES
     Route: 042
     Dates: start: 201912

REACTIONS (12)
  - Gait disturbance [Unknown]
  - Neurological decompensation [Unknown]
  - Spinal cord injury [Unknown]
  - Dysstasia [Not Recovered/Not Resolved]
  - Muscular weakness [Unknown]
  - Spinal disorder [Unknown]
  - General physical health deterioration [Unknown]
  - Motor dysfunction [Unknown]
  - Muscular weakness [Unknown]
  - Metastasis [Unknown]
  - Sensory disturbance [Unknown]
  - Death [Fatal]

NARRATIVE: CASE EVENT DATE: 202004
